FAERS Safety Report 5261483-0 (Version None)
Quarter: 2007Q1

REPORT INFORMATION
  Report Type: 
  Country: None (occurrence: None)
  Receive Date: 20070307
  Receipt Date: 20070223
  Transmission Date: 20070707
  Serious: Yes (Hospitalization)
  Sender: FDA-Public Use
  Company Number: OMPQ-NO-0702S-0066

PATIENT
  Age: 44 Year
  Sex: Male
  Weight: 83.2 kg

DRUGS (7)
  1. OMNIPAQUE 140 [Suspect]
     Indication: ABDOMINAL PAIN
     Dosage: 100 ML, SINGLE DOSE, I.V.
     Route: 042
     Dates: start: 20070113, end: 20070113
  2. MAGNESIUM OXIDE [Concomitant]
  3. MOSAPRIDE CITRATE (GASMOTIN) [Concomitant]
  4. LITHIUM CARBONATE (LIMAS) [Concomitant]
  5. FLUNITRAZEPAM (SILECE) [Concomitant]
  6. TEGRETOL [Concomitant]
  7. BROMAZEPAM (LEXOTAN) [Concomitant]

REACTIONS (12)
  - DIZZINESS [None]
  - DYSPNOEA [None]
  - EAR DISCOMFORT [None]
  - HEADACHE [None]
  - HYPOACUSIS [None]
  - NAUSEA [None]
  - OPTIC NEURITIS [None]
  - OPTIC NEUROPATHY [None]
  - SENSORY DISTURBANCE [None]
  - SPEECH DISORDER [None]
  - SUDDEN HEARING LOSS [None]
  - VISUAL ACUITY REDUCED [None]
